FAERS Safety Report 8793319 (Version 1)
Quarter: 2012Q4

REPORT INFORMATION
  Report Type: 
  Country: DK (occurrence: DK)
  Receive Date: 20120917
  Receipt Date: 20120917
  Transmission Date: 20130627
  Serious: Yes (Other)
  Sender: FDA-Public Use
  Company Number: DK-ASTRAZENECA-2012SE70488

PATIENT
  Age: 87 Year
  Sex: Male

DRUGS (11)
  1. MEROPENEM [Suspect]
     Indication: PSEUDOMONAS INFECTION
     Route: 042
     Dates: start: 20120716
  2. CIPROFLOXACIN [Suspect]
     Indication: PSEUDOMONAS INFECTION
     Route: 048
     Dates: start: 20120717, end: 20120717
  3. CIPROFLOXACIN [Suspect]
     Indication: PSEUDOMONAS INFECTION
     Route: 048
     Dates: start: 20120718, end: 20120719
  4. VESICARE [Concomitant]
  5. MAREVAN [Concomitant]
     Dates: end: 20120716
  6. FURIX [Concomitant]
  7. KALEORID [Concomitant]
  8. SERETIDE [Concomitant]
  9. VENTOLINE [Concomitant]
  10. ZOPICLON [Concomitant]
  11. MAGNESIA ^DAK^ [Concomitant]

REACTIONS (5)
  - Blister [Unknown]
  - Purpura [Unknown]
  - Vasculitis [Unknown]
  - Drug eruption [Unknown]
  - Oedema peripheral [Unknown]
